FAERS Safety Report 12780431 (Version 2)
Quarter: 2016Q4

REPORT INFORMATION
  Report Type: Spontaneous
  Country: US (occurrence: US)
  Receive Date: 20160926
  Receipt Date: 20161005
  Transmission Date: 20170207
  Serious: Yes (Other)
  Sender: FDA-Public Use
  Company Number: US-SUNOVION-2016SUN002298

PATIENT
  Sex: Male

DRUGS (2)
  1. APTIOM [Suspect]
     Active Substance: ESLICARBAZEPINE ACETATE
     Indication: SEIZURE
     Dosage: UNK
     Route: 048
     Dates: start: 201609
  2. TRILEPTAL [Interacting]
     Active Substance: OXCARBAZEPINE
     Dosage: UNK

REACTIONS (5)
  - Seizure [Unknown]
  - Drug ineffective [Unknown]
  - Initial insomnia [Unknown]
  - Labelled drug-drug interaction medication error [Unknown]
  - Generalised tonic-clonic seizure [Unknown]
